FAERS Safety Report 7238002-2 (Version None)
Quarter: 2011Q1

REPORT INFORMATION
  Report Type: 
  Country: None (occurrence: None)
  Receive Date: 20110121
  Receipt Date: 20090715
  Transmission Date: 20110831
  Serious: No
  Sender: FDA-Public Use
  Company Number: A0829471A

PATIENT
  Sex: Female

DRUGS (1)
  1. ACITRETIN [Suspect]
     Indication: SKIN DISORDER
     Dosage: 25MG PER DAY
     Route: 048

REACTIONS (2)
  - DRUG EXPOSURE BEFORE PREGNANCY [None]
  - PREGNANCY [None]
